FAERS Safety Report 10248841 (Version 1)
Quarter: 2014Q2

REPORT INFORMATION
  Report Type: Spontaneous
  Country: US (occurrence: None)
  Receive Date: 20140619
  Receipt Date: 20140619
  Transmission Date: 20141212
  Serious: Yes (Life-Threatening, Disabling, Other)
  Sender: FDA-Public Use
  Company Number: None

PATIENT
  Age: 62 Year
  Sex: Female

DRUGS (10)
  1. LAMOTRIGINE [Suspect]
     Indication: DEPRESSION
     Dosage: EXPIRATION DATE: UNKNOWN?LOT NUMBER: UNKNOWN?NDC NUMBER: 13668-0045-05?QUANTITY: 25 MG ? BUT I TOOK ? APRIL ? JUNE 2011:?6.25 MG. APRIL 6TH ? UP TO 12.50 MG APRIL 25TH ? THEN DOWN TO 4 MG JUNE 3RD FREQUENCY: ONCE AT BEDTIME?ADMINISTERED: ORALLY
     Route: 048
     Dates: start: 20110406, end: 201106
  2. LAMOTRIGINE [Suspect]
     Indication: PROPHYLAXIS
     Dosage: EXPIRATION DATE: UNKNOWN?LOT NUMBER: UNKNOWN?NDC NUMBER: 13668-0045-05?QUANTITY: 25 MG ? BUT I TOOK ? APRIL ? JUNE 2011:?6.25 MG. APRIL 6TH ? UP TO 12.50 MG APRIL 25TH ? THEN DOWN TO 4 MG JUNE 3RD FREQUENCY: ONCE AT BEDTIME?ADMINISTERED: ORALLY
     Route: 048
     Dates: start: 20110406, end: 201106
  3. LAMOTRIGINE DR. REDDY^S [Suspect]
     Indication: DEPRESSION
     Dosage: LE OF THE COMPANY THAT MAKES THE PRODUCT: DR. REDDY^S?EXPIRATION DATE: UNKNOWN LOT NUMBER: UNKNOWN?NDC NUMBER: 55111-0220-05 STRENGTH: 25 MG ? BUT I TOOK:?4 MG. JUNE 2011 ? JUNE 2012 (WITH SOME VARIATIONS IN DOSAGE ? UP TO 6.25 MG) FREQUENCY: ONCE AT BEDTIME?ADMINISTERED: ORALLY
     Route: 048
     Dates: start: 201106, end: 201206
  4. LAMOTRIGINE TEVA [Suspect]
     Indication: DEPRESSION
     Dosage: IE OF THE COMPANY THAT MAKES THE PRODUCT: TEVA EXPIRATION DATE: UNKNOWN?LOT NUMBER: UNKNOWN?NDC NUMBER: 00093-0688-01?STRENGTH: 5 MG. ? BUT I TOOK ? FROM JUNE 4 ? JULY 15, 2012: VARIATIONS IN DOSAGE ? FROM 1 MG TO 3 MG (APPROX.) FREQUENCY: ONCE AT BEDTIME?ADMINISTERED: ORALLY
     Route: 048
     Dates: start: 20120604, end: 20120715
  5. VITAMIN K2 [Concomitant]
  6. LUTEIN [Concomitant]
  7. FISH OIL [Concomitant]
  8. BLACK CURRENT SEED OIL [Concomitant]
  9. CALCIUM CHEWS [Concomitant]
  10. VITAMIN D3 [Concomitant]

REACTIONS (15)
  - Eye pain [None]
  - Autoimmune disorder [None]
  - Nasopharyngitis [None]
  - Sinusitis [None]
  - Influenza like illness [None]
  - Pyrexia [None]
  - Photophobia [None]
  - Lacrimal disorder [None]
  - Depression [None]
  - Malaise [None]
  - Feeling abnormal [None]
  - Sedation [None]
  - Suicidal ideation [None]
  - Myasthenia gravis [None]
  - Ocular myasthenia [None]
